FAERS Safety Report 16688537 (Version 2)
Quarter: 2024Q2

REPORT INFORMATION
  Report Type: Spontaneous
  Country: US (occurrence: US)
  Receive Date: 20190809
  Receipt Date: 20240418
  Transmission Date: 20240716
  Serious: No
  Sender: FDA-Public Use
  Company Number: US-PURDUE-USA-2019-0146116

PATIENT
  Age: 67 Year
  Sex: Male
  Weight: 79.378 kg

DRUGS (2)
  1. BUPRENORPHINE [Suspect]
     Active Substance: BUPRENORPHINE
     Indication: Back pain
     Dosage: 15 MCG/HR, WEEKLY
     Route: 062
     Dates: start: 20130415
  2. BUPRENORPHINE [Suspect]
     Active Substance: BUPRENORPHINE
     Indication: Pain management
     Dosage: 15 MCG/HR, WEEKLY
     Route: 062
     Dates: start: 2011

REACTIONS (8)
  - Skin irritation [Recovered/Resolved]
  - Restless legs syndrome [Unknown]
  - Rash [Recovered/Resolved]
  - Product adhesion issue [Unknown]
  - Unevaluable event [Recovered/Resolved]
  - Drug withdrawal syndrome [Unknown]
  - Product availability issue [Unknown]
  - Headache [Unknown]

NARRATIVE: CASE EVENT DATE: 20190201
